FAERS Safety Report 18261850 (Version 1)
Quarter: 2020Q3

REPORT INFORMATION
  Report Type: Spontaneous
  Country: US (occurrence: US)
  Receive Date: 20200914
  Receipt Date: 20200914
  Transmission Date: 20201103
  Serious: No
  Sender: FDA-Public Use
  Company Number: US-EPIHEALTH-2020-US-007994

PATIENT
  Age: 62 Year
  Sex: Male
  Weight: 79.38 kg

DRUGS (1)
  1. CLODERM [Suspect]
     Active Substance: CLOCORTOLONE PIVALATE
     Indication: RASH
     Dosage: SPARINGLY AS NEEDED, THEN INCREASED TO DAILY USE ^ABOUT 1 WEEK AGO^
     Route: 061
     Dates: start: 20200201, end: 20200416

REACTIONS (8)
  - Application site erythema [Recovering/Resolving]
  - Dyspnoea [Recovered/Resolved]
  - Eczema [Not Recovered/Not Resolved]
  - Dermatitis [Not Recovered/Not Resolved]
  - Application site swelling [Recovered/Resolved]
  - Application site vesicles [Recovered/Resolved]
  - Peripheral swelling [Recovered/Resolved]
  - Application site pruritus [Recovering/Resolving]

NARRATIVE: CASE EVENT DATE: 20200412
